FAERS Safety Report 23987404 (Version 1)
Quarter: 2024Q2

REPORT INFORMATION
  Report Type: Spontaneous
  Country: SE (occurrence: SE)
  Receive Date: 20240618
  Receipt Date: 20240618
  Transmission Date: 20240716
  Serious: Yes (Hospitalization)
  Sender: FDA-Public Use
  Company Number: None

PATIENT
  Age: 31 Year
  Sex: Female

DRUGS (5)
  1. HYRIMOZ [Suspect]
     Active Substance: ADALIMUMAB-ADAZ
     Indication: Crohn^s disease
     Dosage: 4 SPRUTOR VECKA 0, 2 SPRUTOR VECKA 2, D?REFTER 1 SPRUTA VARANNAN VECKA
     Route: 058
     Dates: start: 20230614
  2. BENFEROL [Concomitant]
     Indication: Product used for unknown indication
     Dosage: 1 TABLETT PER VECKA
     Route: 048
     Dates: start: 20230801
  3. FERROUS SULFATE [Concomitant]
     Active Substance: FERROUS SULFATE
     Indication: Product used for unknown indication
     Dosage: 1X1
     Route: 048
     Dates: start: 20231214
  4. Folsyra eql pharma [Concomitant]
     Indication: Product used for unknown indication
     Dosage: 1X1
     Route: 048
     Dates: start: 20230306
  5. OMEPRAZOLE [Concomitant]
     Active Substance: DONEPEZIL HYDROCHLORIDE\OMEPRAZOLE\OMEPRAZOLE MAGNESIUM
     Indication: Product used for unknown indication
     Dosage: 1 VB
     Route: 048
     Dates: start: 20230306

REACTIONS (2)
  - Amniotic fluid volume decreased [Unknown]
  - Maternal exposure during pregnancy [Unknown]
